FAERS Safety Report 6075475-5 (Version None)
Quarter: 2009Q1

REPORT INFORMATION
  Report Type: 
  Country: None (occurrence: None)
  Receive Date: 20090212
  Receipt Date: 20090206
  Transmission Date: 20090719
  Serious: Yes (Hospitalization)
  Sender: FDA-Public Use
  Company Number: B0556730A

PATIENT
  Age: 61 Year
  Sex: Male

DRUGS (13)
  1. VALTREX [Suspect]
     Indication: HERPES ZOSTER
     Dosage: 500MG PER DAY
     Route: 048
     Dates: start: 20090124, end: 20090128
  2. LIPITOR [Concomitant]
     Dosage: 5MG PER DAY
     Route: 048
  3. PARIET [Concomitant]
     Dosage: 10MG PER DAY
     Route: 048
  4. ALLELOCK [Concomitant]
     Dosage: 10MG PER DAY
     Route: 048
  5. GOODMIN [Concomitant]
     Route: 048
  6. PROMAC [Concomitant]
     Dosage: 1.5MG PER DAY
     Route: 048
  7. TANKARU [Concomitant]
     Dosage: 3000MG PER DAY
     Route: 048
  8. ROHYPNOL [Concomitant]
     Dosage: 2MG PER DAY
     Route: 048
  9. MIYA BM [Concomitant]
     Route: 048
  10. D-ALFA [Concomitant]
     Dosage: .5MCG PER DAY
     Route: 048
  11. AMLODIPINE [Concomitant]
     Dosage: 5MG PER DAY
     Route: 048
  12. TERRA-CORTRIL [Concomitant]
     Route: 061
  13. ARASENA-A [Concomitant]
     Route: 061

REACTIONS (10)
  - ABNORMAL BEHAVIOUR [None]
  - ALTERED STATE OF CONSCIOUSNESS [None]
  - DISORIENTATION [None]
  - DIZZINESS [None]
  - DYSARTHRIA [None]
  - HALLUCINATION [None]
  - NAUSEA [None]
  - SPEECH DISORDER [None]
  - TREMOR [None]
  - VOMITING [None]
